FAERS Safety Report 21866105 (Version 2)
Quarter: 2023Q4

REPORT INFORMATION
  Report Type: Spontaneous
  Country: GB (occurrence: GB)
  Receive Date: 20230116
  Receipt Date: 20231128
  Transmission Date: 20240110
  Serious: Yes (Other)
  Sender: FDA-Public Use
  Company Number: GB-SA-SAC20230113001379

PATIENT
  Sex: Male

DRUGS (1)
  1. PRALUENT [Suspect]
     Active Substance: ALIROCUMAB
     Indication: Type IIa hyperlipidaemia
     Dosage: 150 MG, QOW
     Route: 058
     Dates: start: 20210302

REACTIONS (4)
  - Lung neoplasm malignant [Not Recovered/Not Resolved]
  - Joint swelling [Unknown]
  - Influenza [Unknown]
  - Nasopharyngitis [Unknown]

NARRATIVE: CASE EVENT DATE: 20230101
